FAERS Safety Report 12540184 (Version 1)
Quarter: 2016Q3

REPORT INFORMATION
  Report Type: Spontaneous
  Country: GB (occurrence: GB)
  Receive Date: 20160708
  Receipt Date: 20160708
  Transmission Date: 20161109
  Serious: Yes (Death, Life-Threatening, Hospitalization)
  Sender: FDA-Public Use
  Company Number: GB-NOVOPROD-499168

PATIENT
  Age: 47 Year
  Sex: Female
  Weight: 70 kg

DRUGS (1)
  1. NOVORAPID [Suspect]
     Active Substance: INSULIN ASPART
     Indication: TYPE 1 DIABETES MELLITUS
     Dosage: BETWEEN 50-60 IU, QD
     Route: 058

REACTIONS (4)
  - Product container issue [Unknown]
  - Diabetic ketoacidosis [Fatal]
  - Cardiac arrest [Fatal]
  - Product leakage [Unknown]

NARRATIVE: CASE EVENT DATE: 20160612
